FAERS Safety Report 8992795 (Version 1)
Quarter: 2013Q1

REPORT INFORMATION
  Report Type: Spontaneous
  Country: US (occurrence: US)
  Receive Date: 20130102
  Receipt Date: 20130102
  Transmission Date: 20140127
  Serious: Yes (Other)
  Sender: FDA-Public Use
  Company Number: US-AMGEN-USASP2012083394

PATIENT
  Sex: Female

DRUGS (2)
  1. NPLATE [Suspect]
     Indication: IDIOPATHIC THROMBOCYTOPENIC PURPURA
     Dosage: 10 MUG/KG, UNK
  2. IMMUNOGLOBULIN I.V [Concomitant]
     Route: 042

REACTIONS (4)
  - Splenectomy [Unknown]
  - Platelet count abnormal [Unknown]
  - Haemoglobin increased [Unknown]
  - White blood cell count increased [Unknown]
